FAERS Safety Report 11928174 (Version 2)
Quarter: 2016Q1

REPORT INFORMATION
  Report Type: Spontaneous
  Country: US (occurrence: US)
  Receive Date: 20160119
  Receipt Date: 20160120
  Transmission Date: 20160526
  Serious: Yes (Other)
  Sender: FDA-Public Use
  Company Number: US-ASTRAZENECA-2016SE04320

PATIENT
  Age: 744 Month
  Sex: Female
  Weight: 49.4 kg

DRUGS (15)
  1. ARIMIDEX [Suspect]
     Active Substance: ANASTROZOLE
     Route: 048
  2. CALCIUM [Concomitant]
     Active Substance: CALCIUM
  3. IBRANCE [Suspect]
     Active Substance: PALBOCICLIB
     Route: 048
     Dates: start: 20151104, end: 20151119
  4. AFINITOR [Concomitant]
     Active Substance: EVEROLIMUS
  5. FOSAMAX [Concomitant]
     Active Substance: ALENDRONATE SODIUM
  6. FASLODEX [Suspect]
     Active Substance: FULVESTRANT
     Route: 030
     Dates: start: 201503
  7. AROMASIN [Concomitant]
     Active Substance: EXEMESTANE
  8. TAMOXIFEN [Concomitant]
     Active Substance: TAMOXIFEN
  9. VITAMIN D [Concomitant]
     Active Substance: CHOLECALCIFEROL
  10. IBRANCE [Suspect]
     Active Substance: PALBOCICLIB
     Route: 048
     Dates: start: 20150923, end: 20151016
  11. AMITRIPTYLINE [Concomitant]
     Active Substance: AMITRIPTYLINE
     Indication: MUSCULOSKELETAL CHEST PAIN
  12. ARIMIDEX [Suspect]
     Active Substance: ANASTROZOLE
     Route: 048
     Dates: start: 201406, end: 201501
  13. IBRANCE [Suspect]
     Active Substance: PALBOCICLIB
     Route: 048
     Dates: start: 20151211
  14. OXYCODONE [Concomitant]
     Active Substance: OXYCODONE
     Indication: MUSCULOSKELETAL CHEST PAIN
  15. GABAPENTIN. [Concomitant]
     Active Substance: GABAPENTIN
     Indication: MUSCULOSKELETAL CHEST PAIN

REACTIONS (7)
  - Malignant neoplasm progression [Unknown]
  - Muscle spasms [Unknown]
  - Skin lesion [Unknown]
  - Fatigue [Unknown]
  - Endometrial disorder [Unknown]
  - Neutropenia [Unknown]
  - Bone marrow failure [Unknown]

NARRATIVE: CASE EVENT DATE: 201501
